FAERS Safety Report 16675749 (Version 1)
Quarter: 2019Q3

REPORT INFORMATION
  Report Type: Spontaneous
  Country: BR (occurrence: BR)
  Receive Date: 20190806
  Receipt Date: 20190806
  Transmission Date: 20191004
  Serious: Yes (Other)
  Sender: FDA-Public Use
  Company Number: BR-ABBVIE-19P-020-2870713-00

PATIENT
  Age: 41 Year
  Sex: Male
  Weight: 83 kg

DRUGS (4)
  1. DEPAKOTE ER [Suspect]
     Active Substance: DIVALPROEX SODIUM
     Indication: BIPOLAR DISORDER
     Route: 048
  2. CALCORT [Suspect]
     Active Substance: DEFLAZACORT
     Indication: INFLAMMATION
  3. DEPAKOTE ER [Suspect]
     Active Substance: DIVALPROEX SODIUM
     Indication: ANXIETY
  4. CALCORT [Suspect]
     Active Substance: DEFLAZACORT
     Indication: OROPHARYNGEAL PAIN
     Route: 048
     Dates: start: 20190710

REACTIONS (7)
  - Oropharyngeal pain [Recovered/Resolved]
  - Hernia repair [Unknown]
  - Pyrexia [Unknown]
  - Ill-defined disorder [Unknown]
  - Asthenia [Unknown]
  - Product use in unapproved indication [Unknown]
  - Pain [Unknown]

NARRATIVE: CASE EVENT DATE: 2019
